FAERS Safety Report 21239159 (Version 1)
Quarter: 2022Q3

REPORT INFORMATION
  Report Type: Spontaneous
  Country: US (occurrence: None)
  Receive Date: 20220819
  Receipt Date: 20220819
  Transmission Date: 20221027
  Serious: No
  Sender: FDA-Public Use
  Company Number: None

PATIENT
  Age: 43 Year
  Sex: Female

DRUGS (1)
  1. AMBRISENTAN [Suspect]
     Active Substance: AMBRISENTAN
     Indication: Pulmonary arterial hypertension
     Dosage: FREQUENCY : DAILY;?
     Route: 048
     Dates: start: 20210427

REACTIONS (5)
  - Device malfunction [None]
  - Device alarm issue [None]
  - Dyspnoea [None]
  - Drug dose omission by device [None]
  - Device power source issue [None]

NARRATIVE: CASE EVENT DATE: 20220818
